FAERS Safety Report 6470771-1 (Version None)
Quarter: 2009Q4

REPORT INFORMATION
  Report Type: 
  Country: None (occurrence: None)
  Receive Date: 20091203
  Receipt Date: 20091123
  Transmission Date: 20100525
  Serious: Yes (Hospitalization)
  Sender: FDA-Public Use
  Company Number: B0607517A

PATIENT
  Sex: Male
  Weight: 4.4 kg

DRUGS (4)
  1. RANIPLEX [Suspect]
     Indication: DRUG USE FOR UNKNOWN INDICATION
     Dosage: 50MG UNKNOWN
     Route: 051
     Dates: start: 20040501, end: 20040702
  2. VANCOMYCIN [Suspect]
     Indication: DRUG USE FOR UNKNOWN INDICATION
     Route: 065
     Dates: start: 20040627, end: 20040702
  3. AMIKLIN [Suspect]
     Indication: DRUG USE FOR UNKNOWN INDICATION
     Route: 065
     Dates: start: 20040627, end: 20040628
  4. CLAFORAN [Suspect]
     Indication: DRUG USE FOR UNKNOWN INDICATION
     Route: 065
     Dates: start: 20040627, end: 20040628

REACTIONS (4)
  - ANAEMIA [None]
  - DEVICE RELATED INFECTION [None]
  - NEUTROPENIA [None]
  - PYREXIA [None]
